FAERS Safety Report 8306409-8 (Version None)
Quarter: 2012Q2

REPORT INFORMATION
  Report Type: 
  Country: None (occurrence: None)
  Receive Date: 20120423
  Receipt Date: 20120228
  Transmission Date: 20120825
  Serious: Yes (Hospitalization)
  Sender: FDA-Public Use
  Company Number: PHHY2012DE032819

PATIENT
  Age: 49 Year
  Sex: Female

DRUGS (10)
  1. VENLAFAXINE [Interacting]
     Dosage: 75 MG, BID
     Route: 048
  2. VALORON N [Concomitant]
     Indication: SCIATICA
     Dosage: 3 DF, QD
  3. L-THYROXIN-JOD [Concomitant]
     Indication: HYPOTHYROIDISM
     Dosage: 1 DF, QD
  4. VENLAFAXINE [Interacting]
     Dosage: 75 MG, TID (2-1-0)
     Route: 048
  5. ISOSORBIDE DINITRATE [Suspect]
     Indication: PRINZMETAL ANGINA
     Dosage: 20 MG, BID
     Route: 048
  6. EXFORGE HCT [Interacting]
     Indication: HYPERTENSION
     Dosage: 1 DF (160 MG VALS, 12.5 MG HYDRO AND 10 MG AMLO), QD
     Route: 048
     Dates: end: 20120302
  7. SIMVASTATIN [Concomitant]
     Indication: HYPERCHOLESTEROLAEMIA
     Dosage: 10 MG, QD
  8. TRANCOLON [Concomitant]
     Indication: SCIATICA
     Dosage: 1 DF, QD
  9. CORVATON [Interacting]
     Indication: PRINZMETAL ANGINA
     Dosage: 2 MG, QD
     Route: 048
  10. TRILEPTAL [Concomitant]
     Indication: EPILEPSY
     Dosage: 300 MG, BID

REACTIONS (5)
  - VOMITING [None]
  - DIARRHOEA [None]
  - TOXICITY TO VARIOUS AGENTS [None]
  - BLOOD PRESSURE FLUCTUATION [None]
  - GASTROINTESTINAL DISORDER [None]
